FAERS Safety Report 16749022 (Version 1)
Quarter: 2019Q3

REPORT INFORMATION
  Report Type: Spontaneous
  Country: FR (occurrence: FR)
  Receive Date: 20190828
  Receipt Date: 20190828
  Transmission Date: 20191005
  Serious: Yes (Life-Threatening)
  Sender: FDA-Public Use
  Company Number: FR-TEVA-2019-FR-1097460

PATIENT
  Age: 72 Year
  Sex: Female
  Weight: 47 kg

DRUGS (1)
  1. SOTALOL (CHLORHYDRATE DE) [Suspect]
     Active Substance: SOTALOL
     Indication: TACHYCARDIA
     Dosage: 1040 MILLIGRAM, 1 TOTAL
     Route: 048
     Dates: start: 20190520

REACTIONS (4)
  - Overdose [Recovered/Resolved]
  - Fall [Recovered/Resolved]
  - Electrocardiogram QT prolonged [Recovered/Resolved]
  - Bradycardia [Recovered/Resolved]

NARRATIVE: CASE EVENT DATE: 20190520
